FAERS Safety Report 9528548 (Version 1)
Quarter: 2013Q3

REPORT INFORMATION
  Report Type: Spontaneous
  Country: JP (occurrence: JP)
  Receive Date: 20130917
  Receipt Date: 20130917
  Transmission Date: 20140515
  Serious: Yes (Hospitalization)
  Sender: FDA-Public Use
  Company Number: JP-SANOFI-AVENTIS-2013SA089577

PATIENT
  Age: 37 Year
  Sex: Male

DRUGS (2)
  1. PENTAZOCINE HYDROCHLORIDE [Suspect]
     Indication: PAIN
     Route: 030
  2. PENTAZOCINE HYDROCHLORIDE [Suspect]
     Indication: PAIN
     Route: 030

REACTIONS (11)
  - Moyamoya disease [Recovering/Resolving]
  - Cerebral infarction [Recovering/Resolving]
  - Cerebral artery occlusion [Recovering/Resolving]
  - Coma scale abnormal [Recovering/Resolving]
  - Blood pressure increased [Recovering/Resolving]
  - Tachycardia [Recovering/Resolving]
  - Respiratory rate increased [Recovering/Resolving]
  - Mydriasis [Recovering/Resolving]
  - Extensor plantar response [Recovering/Resolving]
  - Hemiplegia [Recovering/Resolving]
  - Body temperature increased [Recovering/Resolving]
